FAERS Safety Report 8785242 (Version 1)
Quarter: 2012Q4

REPORT INFORMATION
  Report Type: 
  Country: TH (occurrence: TH)
  Receive Date: 20120914
  Receipt Date: 20120914
  Transmission Date: 20130627
  Serious: Yes (Life-Threatening, Other)
  Sender: FDA-Public Use
  Company Number: TH-ASTRAZENECA-2012SE70715

PATIENT
  Age: 68 Year
  Sex: Male

DRUGS (3)
  1. BRILINTA [Suspect]
     Indication: ANTICOAGULANT THERAPY
     Route: 048
     Dates: start: 20120806, end: 20120806
  2. BRILINTA [Suspect]
     Indication: ANTICOAGULANT THERAPY
     Route: 048
     Dates: start: 20120807
  3. NEXIUM [Concomitant]
     Indication: GASTRITIS PROPHYLAXIS
     Route: 048
     Dates: start: 20120807

REACTIONS (3)
  - Acute myocardial infarction [Recovered/Resolved]
  - Thrombosis in device [Unknown]
  - Drug ineffective [Unknown]
